FAERS Safety Report 15488253 (Version 1)
Quarter: 2018Q4

REPORT INFORMATION
  Report Type: Spontaneous
  Country: US (occurrence: US)
  Receive Date: 20181011
  Receipt Date: 20181011
  Transmission Date: 20190205
  Serious: No
  Sender: FDA-Public Use
  Company Number: US-RISING PHARMACEUTICALS, INC.-2017RIS00170

PATIENT
  Sex: Female
  Weight: 58.96 kg

DRUGS (1)
  1. PROCTOZONE-HC [Suspect]
     Active Substance: HYDROCORTISONE
     Indication: HAEMORRHOIDS
     Dosage: 2.5 %, UP TO 4X/DAY
     Dates: start: 2016

REACTIONS (2)
  - Intentional product misuse [Unknown]
  - Drug effect incomplete [Not Recovered/Not Resolved]
